FAERS Safety Report 6758792-2 (Version None)
Quarter: 2010Q2

REPORT INFORMATION
  Report Type: 
  Country: None (occurrence: None)
  Receive Date: 20100607
  Receipt Date: 20100525
  Transmission Date: 20101027
  Serious: Yes (Hospitalization, Other)
  Sender: FDA-Public Use
  Company Number: US-AMGEN-US287971

PATIENT
  Sex: Female
  Weight: 16 kg

DRUGS (10)
  1. EPOGEN [Suspect]
     Indication: DIALYSIS
     Route: 058
     Dates: start: 20070305
  2. CALCIUM CARBONATE [Concomitant]
  3. MULTI-VITAMINS [Concomitant]
  4. ENALAPRIL [Concomitant]
  5. IRON [Concomitant]
  6. PREDNISONE [Concomitant]
     Route: 048
  7. FERROUS SULFATE TAB [Concomitant]
     Route: 048
  8. CALCITRIOL [Concomitant]
  9. LANSOPRAZOLE [Concomitant]
  10. FOLIC ACID [Concomitant]

REACTIONS (8)
  - ANTI-ERYTHROPOIETIN ANTIBODY POSITIVE [None]
  - APLASIA PURE RED CELL [None]
  - NEISSERIA INFECTION [None]
  - NON-NEUTRALISING ANTIBODIES POSITIVE [None]
  - PERITONITIS [None]
  - PICA [None]
  - PROTEUS INFECTION [None]
  - STAPHYLOCOCCAL INFECTION [None]
